FAERS Safety Report 5220844-6 (Version None)
Quarter: 2007Q1

REPORT INFORMATION
  Report Type: 
  Country: None (occurrence: None)
  Receive Date: 20070123
  Receipt Date: 20070112
  Transmission Date: 20070707
  Serious: Yes (Hospitalization)
  Sender: FDA-Public Use
  Company Number: 2007AL000261

PATIENT
  Age: 12 Year
  Sex: Female

DRUGS (1)
  1. PROPYLTHIOURACIL [Suspect]
     Indication: BASEDOW'S DISEASE
     Dosage: PO
     Route: 048

REACTIONS (4)
  - BASEDOW'S DISEASE [None]
  - HENOCH-SCHONLEIN PURPURA [None]
  - NEPHRITIS [None]
  - VASCULITIS [None]
